FAERS Safety Report 6373647-3 (Version None)
Quarter: 2009Q3

REPORT INFORMATION
  Report Type: 
  Country: None (occurrence: None)
  Receive Date: 20090924
  Receipt Date: 20090911
  Transmission Date: 20100115
  Serious: Yes (Hospitalization)
  Sender: FDA-Public Use
  Company Number: BR-PFIZER INC-2009267937

PATIENT

DRUGS (3)
  1. LYRICA [Suspect]
     Dosage: 75 MG, UNK
     Route: 048
  2. CODEINE [Suspect]
     Indication: CARPAL TUNNEL SYNDROME
     Dosage: UNK
  3. CARBAMAZEPINE [Suspect]
     Indication: CARPAL TUNNEL SYNDROME
     Dosage: UNK

REACTIONS (1)
  - DRUG TOXICITY [None]
